FAERS Safety Report 11130838 (Version 2)
Quarter: 2015Q3

REPORT INFORMATION
  Report Type: Report from Study
  Country: US (occurrence: US)
  Receive Date: 20150522
  Receipt Date: 20150702
  Transmission Date: 20151125
  Serious: Yes (Hospitalization)
  Sender: FDA-Public Use
  Company Number: US-JNJFOC-20150503956

PATIENT
  Age: 85 Year
  Sex: Female

DRUGS (15)
  1. CHONDROITIN [Concomitant]
     Active Substance: CHONDROITIN
     Indication: NUTRITIONAL SUPPLEMENTATION
     Route: 065
  2. LISINOPRIL. [Concomitant]
     Active Substance: LISINOPRIL
     Indication: HYPERTENSION
     Route: 065
     Dates: start: 20141105
  3. RANEXA [Concomitant]
     Active Substance: RANOLAZINE
     Indication: ANGINA PECTORIS
     Route: 065
     Dates: start: 20120505
  4. BIOTIN [Concomitant]
     Active Substance: BIOTIN
     Indication: NUTRITIONAL SUPPLEMENTATION
     Route: 065
  5. XARELTO [Suspect]
     Active Substance: RIVAROXABAN
     Indication: CEREBROVASCULAR ACCIDENT PROPHYLAXIS
     Route: 048
     Dates: start: 20131024
  6. IBUPROFEN. [Concomitant]
     Active Substance: IBUPROFEN
     Indication: PAIN
     Route: 065
  7. OMEGA 3 FATTY ACIDS [Concomitant]
     Active Substance: OMEGA-3 FATTY ACIDS
     Indication: NUTRITIONAL SUPPLEMENTATION
     Route: 065
  8. ASA [Concomitant]
     Active Substance: ASPIRIN
     Indication: CORONARY ARTERY DISEASE
     Route: 065
  9. XARELTO [Suspect]
     Active Substance: RIVAROXABAN
     Indication: ATRIAL FIBRILLATION
     Route: 048
     Dates: start: 20131024
  10. LACTOBACILLUS ACIDOPHILUS [Concomitant]
     Active Substance: LACTOBACILLUS ACIDOPHILUS
     Indication: NUTRITIONAL SUPPLEMENTATION
     Route: 065
  11. DILTIAZEM [Concomitant]
     Active Substance: DILTIAZEM
     Indication: HYPERTENSION
     Route: 065
     Dates: start: 20150123
  12. GLUCOSAMINE [Concomitant]
     Active Substance: GLUCOSAMINE
     Indication: NUTRITIONAL SUPPLEMENTATION
     Dosage: 500-400 MG
     Route: 065
  13. PREMARIN [Concomitant]
     Active Substance: ESTROGENS, CONJUGATED
     Indication: POSTMENOPAUSE
     Route: 065
     Dates: start: 20141126
  14. ZESTORETIC [Concomitant]
     Active Substance: HYDROCHLOROTHIAZIDE\LISINOPRIL
     Indication: HYPERTENSION
     Route: 065
     Dates: start: 20141105
  15. DITROPAN [Concomitant]
     Active Substance: OXYBUTYNIN CHLORIDE
     Indication: HYPERTONIC BLADDER
     Route: 065
     Dates: start: 20110207

REACTIONS (1)
  - Acute myocardial infarction [Recovered/Resolved]

NARRATIVE: CASE EVENT DATE: 20150505
